FAERS Safety Report 21494328 (Version 2)
Quarter: 2022Q4

REPORT INFORMATION
  Report Type: Report from Study
  Country: US (occurrence: US)
  Receive Date: 20221021
  Receipt Date: 20221213
  Transmission Date: 20230113
  Serious: No
  Sender: FDA-Public Use
  Company Number: US-ABBVIE-4164836

PATIENT
  Sex: Female

DRUGS (1)
  1. VENCLEXTA [Suspect]
     Active Substance: VENETOCLAX
     Indication: Chronic lymphocytic leukaemia
     Dosage: TWO 10MG TABS X7DAYS, ONE 50MG TAB X7DAYS, ONE 100MG TAB X7DAYS, THEN TWO 100MG TABS X7DAYS.?ONGOING
     Route: 048

REACTIONS (1)
  - Diarrhoea [Recovered/Resolved]
